FAERS Safety Report 24838471 (Version 1)
Quarter: 2025Q1

REPORT INFORMATION
  Report Type: Spontaneous
  Country: US (occurrence: US)
  Receive Date: 20250113
  Receipt Date: 20250113
  Transmission Date: 20250408
  Serious: No
  Sender: SIGMAPHARM
  Company Number: US-SIGMAPHARM LABORATORIES, LLC-2024SIG00043

PATIENT
  Sex: Female
  Weight: 67.132 kg

DRUGS (3)
  1. LIOTHYRONINE SODIUM [Suspect]
     Active Substance: LIOTHYRONINE SODIUM
     Indication: Autoimmune thyroiditis
     Dosage: 5 ?G, 1X/DAY
     Route: 048
     Dates: start: 2022
  2. LEVOTHYROXINE [Suspect]
     Active Substance: LEVOTHYROXINE
  3. UNSPECIFIED INGREDIENT [Concomitant]
     Active Substance: UNSPECIFIED INGREDIENT

REACTIONS (8)
  - Bone pain [Recovering/Resolving]
  - Pain in extremity [Recovering/Resolving]
  - Feeling of body temperature change [Recovering/Resolving]
  - Onychoclasis [Recovering/Resolving]
  - Skin disorder [Recovering/Resolving]
  - Thyroid function test abnormal [Recovering/Resolving]
  - Allergic reaction to excipient [Unknown]
  - Alopecia [Recovering/Resolving]
